FAERS Safety Report 7770353-5 (Version None)
Quarter: 2011Q3

REPORT INFORMATION
  Report Type: 
  Country: None (occurrence: None)
  Receive Date: 20110922
  Receipt Date: 20110413
  Transmission Date: 20111222
  Serious: Yes (Hospitalization)
  Sender: FDA-Public Use
  Company Number: US-ASTRAZENECA-2009UW11316

PATIENT
  Age: 18687 Day
  Sex: Female

DRUGS (16)
  1. SYNTHROID [Concomitant]
     Dosage: 0.112-125 DAILY
     Dates: start: 20051123
  2. HYDROCODONE BITARTRATE AND ACETAMINOPHEN [Concomitant]
     Dosage: 10/500 3 DAILY, 10/650 ONE TID, 10/400 TID
     Route: 048
     Dates: start: 19990101
  3. AMBIEN CR [Concomitant]
     Indication: SLEEP DISORDER
     Dosage: 10-12.5 MG
     Dates: start: 20080523
  4. SEROQUEL [Suspect]
     Indication: SLEEP DISORDER
     Dosage: 25-200 MG
     Route: 048
     Dates: start: 20051123, end: 20080523
  5. KLONOPIN [Concomitant]
     Dates: start: 20080825
  6. PRILOSEC [Concomitant]
     Dosage: 20
     Dates: start: 20051123
  7. SINGULAIR [Concomitant]
     Dosage: 10
     Dates: start: 20080523
  8. FLEXERIL [Concomitant]
     Dates: start: 20051123
  9. LYRICA [Concomitant]
     Dosage: 300-550
     Dates: start: 20080523
  10. NASONEX [Concomitant]
     Dates: start: 20080523
  11. ELAVIL [Concomitant]
     Dates: start: 20051123
  12. PREVACID [Concomitant]
     Dosage: 30
     Dates: start: 20080523
  13. ATIVAN [Concomitant]
     Indication: ANXIETY
     Dosage: 0.5-2 MG
     Dates: start: 20051215
  14. SEROQUEL [Suspect]
     Route: 048
     Dates: start: 20060101, end: 20080101
  15. PROZAC [Concomitant]
     Dosage: 40
     Dates: start: 20051123
  16. LUNESTA [Concomitant]
     Indication: SLEEP DISORDER
     Dates: start: 20051123

REACTIONS (3)
  - DIABETIC KETOACIDOSIS [None]
  - TYPE 1 DIABETES MELLITUS [None]
  - DIABETES MELLITUS [None]
